FAERS Safety Report 13091810 (Version 1)
Quarter: 2017Q1

REPORT INFORMATION
  Report Type: Other
  Country: NL (occurrence: NL)
  Receive Date: 20170106
  Receipt Date: 20170106
  Transmission Date: 20170428
  Serious: Yes (Hospitalization, Other)
  Sender: FDA-Public Use
  Company Number: NL-JUBILANT GENERICS LIMITED-1061593

PATIENT
  Age: 19 Year
  Sex: Male

DRUGS (1)
  1. BUPROPION. [Suspect]
     Active Substance: BUPROPION

REACTIONS (4)
  - Serotonin syndrome [Recovered/Resolved]
  - Intentional overdose [Recovered/Resolved]
  - Seizure [Recovered/Resolved]
  - Priapism [Recovered/Resolved]

NARRATIVE: CASE EVENT DATE: 20161227
